FAERS Safety Report 10917524 (Version 1)
Quarter: 2015Q1

REPORT INFORMATION
  Report Type: Spontaneous
  Country: US (occurrence: None)
  Receive Date: 20150312
  Receipt Date: 20150312
  Transmission Date: 20150721
  Serious: Yes (Disabling)
  Sender: FDA-Public Use
  Company Number: None

PATIENT
  Age: 69 Year
  Sex: Female
  Weight: 61.24 kg

DRUGS (11)
  1. PRILOSEC [Concomitant]
     Active Substance: OMEPRAZOLE MAGNESIUM
  2. BIOTIN [Concomitant]
     Active Substance: BIOTIN
  3. CALCIUM [Concomitant]
     Active Substance: CALCIUM
  4. SYNTHROID [Concomitant]
     Active Substance: LEVOTHYROXINE SODIUM
  5. ATIVAN [Concomitant]
     Active Substance: LORAZEPAM
  6. MULTI VITAMIN [Concomitant]
     Active Substance: VITAMINS
  7. PROLIA [Suspect]
     Active Substance: DENOSUMAB
     Indication: OSTEOPOROSIS
     Dosage: EVERY 6 MONTHS, 2 TIMES A YEAR, GIVEN INTO/UNDER THE SKIN??
     Route: 058
     Dates: start: 20140723, end: 20150120
  8. VITAMIN D3 [Concomitant]
     Active Substance: CHOLECALCIFEROL
  9. CALCITROL [Concomitant]
     Active Substance: CALCITRIOL
  10. PREDNESON [Concomitant]
  11. COENZYME Q10 [Concomitant]
     Active Substance: UBIDECARENONE

REACTIONS (7)
  - Blister [None]
  - Arthralgia [None]
  - Myalgia [None]
  - Back pain [None]
  - Rash erythematous [None]
  - Groin pain [None]
  - Rash [None]

NARRATIVE: CASE EVENT DATE: 20150202
